FAERS Safety Report 7740015-9 (Version None)
Quarter: 2011Q3

REPORT INFORMATION
  Report Type: 
  Country: None (occurrence: None)
  Receive Date: 20110906
  Receipt Date: 20110823
  Transmission Date: 20111222
  Serious: Yes (Other)
  Sender: FDA-Public Use
  Company Number: NGX_00582_2011

PATIENT
  Sex: Female

DRUGS (8)
  1. AMITRIPTYLINE HCL [Concomitant]
  2. LYRICA [Concomitant]
  3. EMLA [Concomitant]
  4. FENTANYL CITRATE [Concomitant]
  5. OXYCONTIN [Concomitant]
  6. QUTENZA [Suspect]
     Indication: NEUROPATHY PERIPHERAL
     Dosage: (2 DF, [PATCH] TOPICAL)
     Route: 061
     Dates: start: 20110801, end: 20110801
  7. TRILEPTAL [Concomitant]
  8. IXEL [Concomitant]

REACTIONS (5)
  - ANXIETY [None]
  - APPLICATION SITE PAIN [None]
  - APPLICATION SITE ERYTHEMA [None]
  - PAIN [None]
  - CONDITION AGGRAVATED [None]
